FAERS Safety Report 25926203 (Version 1)
Quarter: 2025Q4

REPORT INFORMATION
  Report Type: Spontaneous
  Country: AE (occurrence: AE)
  Receive Date: 20251015
  Receipt Date: 20251015
  Transmission Date: 20260118
  Serious: Yes (Other)
  Sender: INCYTE
  Company Number: AE-002147023-NVSC2025AE157916

PATIENT

DRUGS (1)
  1. RUXOLITINIB [Suspect]
     Active Substance: RUXOLITINIB
     Indication: Myelofibrosis
     Dosage: UNK UNK, BID, DISPERSIBLE TABLET
     Route: 065

REACTIONS (1)
  - Haemorrhage [Unknown]
